FAERS Safety Report 7430034-4 (Version None)
Quarter: 2011Q2

REPORT INFORMATION
  Report Type: 
  Country: None (occurrence: None)
  Receive Date: 20110421
  Receipt Date: 20110414
  Transmission Date: 20111010
  Serious: Yes (Hospitalization, Other)
  Sender: FDA-Public Use
  Company Number: US-NAPPMUNDI-USA-2011-0065493

PATIENT
  Sex: Male

DRUGS (1)
  1. BUTRANS [Suspect]
     Indication: SPINAL OSTEOARTHRITIS
     Dosage: 5 MCG/HR, UNK
     Route: 062
     Dates: start: 20110310, end: 20100315

REACTIONS (3)
  - DYSPHORIA [None]
  - HALLUCINATION [None]
  - INSOMNIA [None]
